FAERS Safety Report 21138564 (Version 1)
Quarter: 2022Q3

REPORT INFORMATION
  Report Type: Spontaneous
  Country: US (occurrence: US)
  Receive Date: 20220727
  Receipt Date: 20220727
  Transmission Date: 20221027
  Serious: No
  Sender: FDA-Public Use
  Company Number: US-BRISTOL-MYERS SQUIBB COMPANY-2022-074466

PATIENT
  Age: 61 Year
  Sex: Female

DRUGS (1)
  1. HYDREA [Suspect]
     Active Substance: HYDROXYUREA
     Indication: Hypertension
     Dosage: DOSE : 500 MG;     FREQ : DAILY
     Route: 065
     Dates: start: 20220615

REACTIONS (2)
  - Product name confusion [Unknown]
  - Wrong product administered [Unknown]
